FAERS Safety Report 10076836 (Version 1)
Quarter: 2014Q2

REPORT INFORMATION
  Report Type: Spontaneous
  Country: US (occurrence: US)
  Receive Date: 20140414
  Receipt Date: 20140414
  Transmission Date: 20141212
  Serious: Yes (Life-Threatening, Hospitalization, Other)
  Sender: FDA-Public Use
  Company Number: US-PFIZER INC-2014101523

PATIENT
  Age: 53 Year
  Sex: Female
  Weight: 62.59 kg

DRUGS (4)
  1. LYRICA [Suspect]
     Indication: POST HERPETIC NEURALGIA
     Dosage: 50 MG, 2X/DAY
     Route: 048
     Dates: start: 2012, end: 2012
  2. ATENOLOL [Concomitant]
     Indication: HYPERTENSION
     Dosage: UNK
  3. XANAX [Concomitant]
     Dosage: UNK
  4. ZOLOFT [Concomitant]

REACTIONS (4)
  - Discomfort [Unknown]
  - Terminal state [Unknown]
  - Coma [Unknown]
  - Malaise [Unknown]
